FAERS Safety Report 6297800-2 (Version None)
Quarter: 2009Q3

REPORT INFORMATION
  Report Type: 
  Country: None (occurrence: None)
  Receive Date: 20090804
  Receipt Date: 20090804
  Transmission Date: 20100115
  Serious: No
  Sender: FDA-Public Use
  Company Number: None

PATIENT
  Age: 38 Year
  Sex: Female
  Weight: 60.3284 kg

DRUGS (1)
  1. THYROID TAB [Suspect]
     Indication: HYPOTHYROIDISM
     Dosage: 30 MG 1/DAY PO
     Route: 048
     Dates: start: 20090528, end: 20090714

REACTIONS (5)
  - ALOPECIA [None]
  - DEPRESSION [None]
  - DRY SKIN [None]
  - PRODUCT FORMULATION ISSUE [None]
  - WEIGHT INCREASED [None]
